APPROVED DRUG PRODUCT: COLESEVELAM HYDROCHLORIDE
Active Ingredient: COLESEVELAM HYDROCHLORIDE
Strength: 625MG
Dosage Form/Route: TABLET;ORAL
Application: A213456 | Product #001
Applicant: UNITED RESEARCH LABORATORIES LLC
Approved: Jan 21, 2022 | RLD: No | RS: No | Type: DISCN